FAERS Safety Report 21275137 (Version 5)
Quarter: 2024Q2

REPORT INFORMATION
  Report Type: Report from Study
  Country: ES (occurrence: ES)
  Receive Date: 20220831
  Receipt Date: 20240509
  Transmission Date: 20240716
  Serious: Yes (Other)
  Sender: FDA-Public Use
  Company Number: ES-TAKEDA-2022TUS059836

PATIENT
  Age: 67 Year
  Sex: Male

DRUGS (39)
  1. TEDUGLUTIDE [Suspect]
     Active Substance: TEDUGLUTIDE
     Indication: Short-bowel syndrome
     Dosage: 3.95 MILLIGRAM, QD
     Route: 042
     Dates: start: 20190425, end: 20210630
  2. TEDUGLUTIDE [Suspect]
     Active Substance: TEDUGLUTIDE
     Indication: Short-bowel syndrome
     Dosage: 3.95 MILLIGRAM, QD
     Route: 042
     Dates: start: 20190425, end: 20210630
  3. TEDUGLUTIDE [Suspect]
     Active Substance: TEDUGLUTIDE
     Indication: Short-bowel syndrome
     Dosage: 3.95 MILLIGRAM, QD
     Route: 042
     Dates: start: 20190425, end: 20210630
  4. TEDUGLUTIDE [Suspect]
     Active Substance: TEDUGLUTIDE
     Indication: Short-bowel syndrome
     Dosage: 3.95 MILLIGRAM, QD
     Route: 042
     Dates: start: 20190425, end: 20210630
  5. TEDUGLUTIDE [Suspect]
     Active Substance: TEDUGLUTIDE
     Dosage: 1.9 MILLIGRAM, QD
     Route: 042
     Dates: start: 20210630, end: 20210727
  6. TEDUGLUTIDE [Suspect]
     Active Substance: TEDUGLUTIDE
     Dosage: 1.9 MILLIGRAM, QD
     Route: 042
     Dates: start: 20210630, end: 20210727
  7. TEDUGLUTIDE [Suspect]
     Active Substance: TEDUGLUTIDE
     Dosage: 1.9 MILLIGRAM, QD
     Route: 042
     Dates: start: 20210630, end: 20210727
  8. TEDUGLUTIDE [Suspect]
     Active Substance: TEDUGLUTIDE
     Dosage: 1.9 MILLIGRAM, QD
     Route: 042
     Dates: start: 20210630, end: 20210727
  9. TEDUGLUTIDE [Suspect]
     Active Substance: TEDUGLUTIDE
     Dosage: 3.6 MILLIGRAM, QD
     Route: 042
     Dates: start: 20210728
  10. TEDUGLUTIDE [Suspect]
     Active Substance: TEDUGLUTIDE
     Dosage: 3.6 MILLIGRAM, QD
     Route: 042
     Dates: start: 20210728
  11. TEDUGLUTIDE [Suspect]
     Active Substance: TEDUGLUTIDE
     Dosage: 3.6 MILLIGRAM, QD
     Route: 042
     Dates: start: 20210728
  12. TEDUGLUTIDE [Suspect]
     Active Substance: TEDUGLUTIDE
     Dosage: 3.6 MILLIGRAM, QD
     Route: 042
     Dates: start: 20210728
  13. MODERNA COVID-19 VACCINE [Concomitant]
     Active Substance: ELASOMERAN
     Indication: COVID-19 immunisation
     Dosage: 1 INTERNATIONAL UNIT, QD
     Route: 030
     Dates: start: 20211209, end: 20211209
  14. ASTRAZENECA COVID-19 VACCINE [Concomitant]
     Active Substance: AZD-1222
     Indication: COVID-19 immunisation
     Dosage: 1 INTERNATIONAL UNIT, QD
     Route: 030
     Dates: start: 20210705, end: 20210705
  15. ASTRAZENECA COVID-19 VACCINE [Concomitant]
     Active Substance: AZD-1222
     Dosage: 1 INTERNATIONAL UNIT, QD
     Route: 030
     Dates: start: 20210427, end: 20210427
  16. SANDOSTATIN LAR DEPOT [Concomitant]
     Active Substance: OCTREOTIDE ACETATE
     Indication: Gastrointestinal stoma complication
     Dosage: 20 MILLIGRAM, MONTHLY
     Route: 030
     Dates: start: 20220118
  17. CARVEDILOL [Concomitant]
     Active Substance: CARVEDILOL
     Indication: Portal hypertension
     Dosage: 6.25 MILLIGRAM, QD
     Route: 048
     Dates: start: 20220323
  18. CARVEDILOL [Concomitant]
     Active Substance: CARVEDILOL
     Indication: Hepatic cirrhosis
  19. LOPERAMIDE HYDROCHLORIDE [Concomitant]
     Active Substance: LOPERAMIDE HYDROCHLORIDE
     Dosage: 4 MILLIGRAM, TID
     Route: 048
     Dates: start: 20100127
  20. LANSOPRAZOLE [Concomitant]
     Active Substance: LANSOPRAZOLE
     Dosage: 30 MILLIGRAM, QD
     Route: 048
     Dates: start: 20100127
  21. GEMFIBROZIL [Concomitant]
     Active Substance: GEMFIBROZIL
     Indication: Hypertriglyceridaemia
     Dosage: 600 MILLIGRAM, QD
     Route: 048
     Dates: start: 20111025
  22. MAGNESIOBOI [Concomitant]
     Dosage: 1 DOSAGE FORM, QD
     Route: 048
     Dates: start: 20100914, end: 20200718
  23. NATECAL D FLASH [Concomitant]
     Dosage: 1 DOSAGE FORM, QD
     Route: 048
     Dates: start: 20111025
  24. CALCIFEDIOL [Concomitant]
     Active Substance: CALCIFEDIOL
     Dosage: 1 DOSAGE FORM, 1/WEEK
     Route: 048
     Dates: start: 20120920
  25. KONAKION [Concomitant]
     Active Substance: PHYTONADIONE
     Indication: Vitamin K deficiency
     Dosage: 1 DOSAGE FORM, 1/WEEK
     Dates: start: 20151015, end: 20190801
  26. EBASTINE [Concomitant]
     Active Substance: EBASTINE
     Indication: Urticaria chronic
     Dosage: 1 DOSAGE FORM, QD
     Route: 048
     Dates: start: 20100127
  27. POLARAMINE [Concomitant]
     Active Substance: DEXCHLORPHENIRAMINE MALEATE
     Indication: Urticaria chronic
     Dosage: 1 DOSAGE FORM, QD
     Route: 048
     Dates: start: 20100127
  28. LYRICA [Concomitant]
     Active Substance: PREGABALIN
     Indication: Sciatica
     Dosage: 75 DOSAGE FORM, BID
     Route: 048
     Dates: start: 20200701
  29. Ciclobenzaprina [Concomitant]
     Dosage: 10 MILLIGRAM, QD
     Route: 048
     Dates: start: 20200803, end: 20201007
  30. DIAZEPAM [Concomitant]
     Active Substance: DIAZEPAM
     Dosage: 5 MILLIGRAM, QD
     Route: 048
     Dates: start: 20200701, end: 20201006
  31. METAMIZOLE MAGNESIUM [Concomitant]
     Active Substance: METAMIZOLE MAGNESIUM
     Dosage: 1 DOSAGE FORM, BID
     Route: 048
     Dates: start: 20200701, end: 20200809
  32. VIRIREC [Concomitant]
     Indication: Erectile dysfunction
     Dosage: 3 MILLIGRAM
     Route: 061
     Dates: start: 20190717
  33. BETAHISTINE HYDROCHLORIDE [Concomitant]
     Active Substance: BETAHISTINE HYDROCHLORIDE
     Indication: Vertigo
     Dosage: 8 MILLIGRAM, TID
     Route: 048
     Dates: start: 20201212, end: 20201213
  34. FERINJECT [Concomitant]
     Active Substance: FERRIC CARBOXYMALTOSE
     Indication: Anaemia macrocytic
     Dosage: 1 GRAM
     Route: 042
     Dates: start: 20201211, end: 20201211
  35. FERINJECT [Concomitant]
     Active Substance: FERRIC CARBOXYMALTOSE
     Indication: Iron deficiency
     Dosage: 1 GRAM
     Route: 042
     Dates: start: 20210712, end: 20210712
  36. FERINJECT [Concomitant]
     Active Substance: FERRIC CARBOXYMALTOSE
     Indication: Iron deficiency anaemia
     Dosage: 1 GRAM
     Route: 042
     Dates: start: 20210816, end: 20210816
  37. FERINJECT [Concomitant]
     Active Substance: FERRIC CARBOXYMALTOSE
     Indication: Anaemia
     Dosage: 1 GRAM
     Route: 042
     Dates: start: 20211228, end: 20211228
  38. FERINJECT [Concomitant]
     Active Substance: FERRIC CARBOXYMALTOSE
     Dosage: 1 GRAM
     Route: 042
     Dates: start: 20220127, end: 20220127
  39. CODEINE PHOSPHATE [Concomitant]
     Active Substance: CODEINE PHOSPHATE
     Dosage: 1 DOSAGE FORM, TID
     Route: 048
     Dates: start: 20210608, end: 20210618

REACTIONS (2)
  - Hepatic cirrhosis [Not Recovered/Not Resolved]
  - Influenza like illness [Recovered/Resolved]

NARRATIVE: CASE EVENT DATE: 20210825
